FAERS Safety Report 16011525 (Version 1)
Quarter: 2019Q1

REPORT INFORMATION
  Report Type: Spontaneous
  Country: US (occurrence: US)
  Receive Date: 20190227
  Receipt Date: 20190227
  Transmission Date: 20190418
  Serious: No
  Sender: FDA-Public Use
  Company Number: US-PFIZER INC-2019073195

PATIENT
  Age: 60 Year
  Sex: Female
  Weight: 108.8 kg

DRUGS (4)
  1. NARDIL [Suspect]
     Active Substance: PHENELZINE SULFATE
     Indication: PANIC ATTACK
     Dosage: 30 MG, 2X/DAY
     Route: 048
  2. ALPRAZOLAM. [Concomitant]
     Active Substance: ALPRAZOLAM
     Dosage: UNK [UP TO 4MG PER DAY]
  3. NARDIL [Suspect]
     Active Substance: PHENELZINE SULFATE
     Indication: AGORAPHOBIA
  4. ALPRAZOLAM. [Concomitant]
     Active Substance: ALPRAZOLAM
     Indication: PANIC ATTACK
     Dosage: 0.5 MG, AS NEEDED
     Route: 048

REACTIONS (2)
  - Product use in unapproved indication [Unknown]
  - Tremor [Not Recovered/Not Resolved]
